FAERS Safety Report 9346052 (Version 2)
Quarter: 2013Q3

REPORT INFORMATION
  Report Type: Spontaneous
  Country: CN (occurrence: CN)
  Receive Date: 20130613
  Receipt Date: 20130710
  Transmission Date: 20140515
  Serious: Yes (Hospitalization, Other)
  Sender: FDA-Public Use
  Company Number: CN-ELI_LILLY_AND_COMPANY-CN201306001980

PATIENT
  Age: 35 Year
  Sex: Male

DRUGS (2)
  1. OLANZAPINE [Suspect]
     Indication: DEPRESSIVE SYMPTOM
     Dosage: 10 MG, QD
     Dates: start: 2008
  2. OLANZAPINE [Suspect]
     Dosage: 20 MG, QD
     Dates: start: 201208

REACTIONS (3)
  - Depression [Unknown]
  - Impaired self-care [Unknown]
  - Tubulointerstitial nephritis [Recovered/Resolved]
